FAERS Safety Report 11152366 (Version 2)
Quarter: 2015Q2

REPORT INFORMATION
  Report Type: Spontaneous
  Country: GB (occurrence: GB)
  Receive Date: 20150601
  Receipt Date: 20150608
  Transmission Date: 20150821
  Serious: Yes (Other)
  Sender: FDA-Public Use
  Company Number: GB-009507513-1505GBR010701

PATIENT
  Age: 25 Year
  Sex: Male
  Weight: 44 kg

DRUGS (1)
  1. PROPECIA [Suspect]
     Active Substance: FINASTERIDE
     Indication: ALOPECIA
     Dosage: 1 MG, QD
     Route: 048
     Dates: start: 20150223, end: 20150515

REACTIONS (7)
  - Sleep disorder [Unknown]
  - Ejaculation disorder [Unknown]
  - Testicular pain [Unknown]
  - Palpitations [Unknown]
  - Depressed mood [Unknown]
  - Testicular disorder [Unknown]
  - Semen discolouration [Unknown]

NARRATIVE: CASE EVENT DATE: 20150416
